FAERS Safety Report 4810071-6 (Version None)
Quarter: 2005Q4

REPORT INFORMATION
  Report Type: 
  Country: None (occurrence: None)
  Receive Date: 20051024
  Receipt Date: 20051024
  Transmission Date: 20060501
  Serious: No
  Sender: FDA-Public Use
  Company Number: None

PATIENT
  Age: 79 Year
  Sex: Male
  Weight: 93.4 kg

DRUGS (1)
  1. CLOPIDOGREL BISULFATE [Suspect]
     Indication: CEREBROVASCULAR ACCIDENT
     Dosage: 75 MG PO QD
     Route: 048
     Dates: start: 20030501, end: 20051001

REACTIONS (1)
  - GASTROINTESTINAL HAEMORRHAGE [None]
